FAERS Safety Report 4361252-X (Version None)
Quarter: 2004Q2

REPORT INFORMATION
  Report Type: 
  Country: None (occurrence: None)
  Receive Date: 20040520
  Receipt Date: 20040512
  Transmission Date: 20050107
  Serious: Yes (Other)
  Sender: FDA-Public Use
  Company Number: PHEH2004US05307

PATIENT
  Age: 16 Year
  Sex: Male

DRUGS (1)
  1. TRILEPTAL [Suspect]
     Dates: start: 20040430, end: 20040505

REACTIONS (2)
  - DEPRESSED MOOD [None]
  - SUICIDAL IDEATION [None]
